FAERS Safety Report 5055759-X (Version None)
Quarter: 2006Q3

REPORT INFORMATION
  Report Type: 
  Country: None (occurrence: None)
  Receive Date: 20060714
  Receipt Date: 20060707
  Transmission Date: 20061208
  Serious: Yes (Hospitalization)
  Sender: FDA-Public Use
  Company Number: OSCN-PR-0607S-0188

PATIENT
  Age: 63 Year
  Sex: Female

DRUGS (1)
  1. OMNISCAN [Suspect]
     Indication: PAIN IN EXTREMITY
     Dosage: 40 MG. SINGLE DOSE, I.V.
     Route: 042
     Dates: start: 20060620, end: 20060620

REACTIONS (4)
  - ANXIETY [None]
  - COLD SWEAT [None]
  - DYSPNOEA [None]
  - PULMONARY OEDEMA [None]
